FAERS Safety Report 8495293-8 (Version None)
Quarter: 2012Q3

REPORT INFORMATION
  Report Type: 
  Country: None (occurrence: None)
  Receive Date: 20120709
  Receipt Date: 20120702
  Transmission Date: 20120928
  Serious: Yes (Hospitalization, Disabling, Other)
  Sender: FDA-Public Use
  Company Number: US-MERCK-1203USA03479

PATIENT

DRUGS (1)
  1. FOSAMAX [Suspect]
     Route: 048
     Dates: start: 19980101, end: 20110101

REACTIONS (27)
  - HUMERUS FRACTURE [None]
  - ANAEMIA [None]
  - LOW TURNOVER OSTEOPATHY [None]
  - ASTHENIA [None]
  - UPPER LIMB FRACTURE [None]
  - LOWER LIMB FRACTURE [None]
  - OSTEOARTHRITIS [None]
  - CAROTID ARTERY DISEASE [None]
  - SKIN ULCER [None]
  - THORACIC VERTEBRAL FRACTURE [None]
  - FEMUR FRACTURE [None]
  - FALL [None]
  - PERIPHERAL VASCULAR DISORDER [None]
  - BLOOD CHOLESTEROL INCREASED [None]
  - NEUROPATHY PERIPHERAL [None]
  - POLYARTHRITIS [None]
  - FUNGAL SKIN INFECTION [None]
  - OSTEOPOROSIS [None]
  - ANKLE FRACTURE [None]
  - DIABETIC NEUROPATHY [None]
  - STRESS FRACTURE [None]
  - CARDIAC FAILURE CONGESTIVE [None]
  - HIP FRACTURE [None]
  - PELVIC FRACTURE [None]
  - ABDOMINAL HERNIA [None]
  - TONSILLAR DISORDER [None]
  - ATRIAL FIBRILLATION [None]
